FAERS Safety Report 20850339 (Version 2)
Quarter: 2023Q2

REPORT INFORMATION
  Report Type: Spontaneous
  Country: FR (occurrence: FR)
  Receive Date: 20220519
  Receipt Date: 20230525
  Transmission Date: 20230722
  Serious: Yes (Death)
  Sender: FDA-Public Use
  Company Number: None

PATIENT
  Age: 36 Year
  Sex: Male

DRUGS (5)
  1. DIAZEPAM [Suspect]
     Active Substance: DIAZEPAM
     Indication: Product used for unknown indication
     Dosage: UNKNOWN,THERAPY START DATE : ASKU
     Route: 065
     Dates: end: 202002
  2. ALCOHOL [Suspect]
     Active Substance: ALCOHOL
     Indication: Product used for unknown indication
     Dosage: UNKNOWN,THERAPY END DATE : NASK
     Route: 065
     Dates: end: 202002
  3. METHADONE [Suspect]
     Active Substance: METHADONE HYDROCHLORIDE
     Indication: Product used for unknown indication
     Dosage: UNKNOWN,THERAPY START DATE : ASKU
     Route: 065
     Dates: end: 202002
  4. CANNABIS SATIVA SUBSP. INDICA TOP [Suspect]
     Active Substance: CANNABIS SATIVA SUBSP. INDICA TOP
     Indication: Product used for unknown indication
     Dosage: UNKNOWN,THERAPY START DATE : ASKU
     Route: 065
     Dates: end: 202002
  5. CHLOROQUINE [Suspect]
     Active Substance: CHLOROQUINE
     Indication: Product used for unknown indication
     Dosage: UNKNOWN,THERAPY START DATE : ASKU
     Route: 065
     Dates: end: 202002

REACTIONS (2)
  - Drug abuse [Fatal]
  - Sudden death [Fatal]

NARRATIVE: CASE EVENT DATE: 20200201
